FAERS Safety Report 24716580 (Version 1)
Quarter: 2024Q4

REPORT INFORMATION
  Report Type: Spontaneous
  Country: US (occurrence: None)
  Receive Date: 20241209
  Receipt Date: 20241209
  Transmission Date: 20250114
  Serious: Yes (Hospitalization)
  Sender: Public
  Company Number: None

PATIENT
  Age: 52 Year
  Sex: Female

DRUGS (1)
  1. HUMIRA [Suspect]
     Active Substance: ADALIMUMAB
     Indication: Psoriatic arthropathy
     Dosage: 40MG/0.4ML  EVERY 14 DAYS UNDER THE SKIN?
     Route: 058
     Dates: start: 202406

REACTIONS (7)
  - Dyspnoea [None]
  - Feeling abnormal [None]
  - Peripheral swelling [None]
  - Stress [None]
  - Psoriasis [None]
  - Therapeutic response decreased [None]
  - Product complaint [None]

NARRATIVE: CASE EVENT DATE: 20241101
